FAERS Safety Report 17526759 (Version 1)
Quarter: 2020Q1

REPORT INFORMATION
  Report Type: Spontaneous
  Country: SK (occurrence: SK)
  Receive Date: 20200311
  Receipt Date: 20200311
  Transmission Date: 20200409
  Serious: Yes (Hospitalization, Other)
  Sender: FDA-Public Use
  Company Number: NVSC2020SK066796

PATIENT
  Age: 26 Year
  Sex: Male

DRUGS (4)
  1. SOMATROPIN. [Suspect]
     Active Substance: SOMATROPIN
     Indication: MUSCLE BUILDING THERAPY
     Dosage: UNK
     Route: 065
  2. CLENBUTEROL [Concomitant]
     Active Substance: CLENBUTEROL
     Indication: MUSCLE MASS
     Dosage: UNK
     Route: 065
  3. SOMATROPIN. [Suspect]
     Active Substance: SOMATROPIN
     Dosage: UNK
     Route: 065
  4. TESTOSTERONE. [Concomitant]
     Active Substance: TESTOSTERONE
     Indication: MUSCLE MASS
     Dosage: UNK
     Route: 065

REACTIONS (4)
  - Drug abuse [Recovered/Resolved]
  - Phaeochromocytoma [Recovered/Resolved]
  - Intentional product misuse [Recovered/Resolved]
  - Hypertension [Recovered/Resolved]
